FAERS Safety Report 8299103-3 (Version None)
Quarter: 2012Q2

REPORT INFORMATION
  Report Type: 
  Country: None (occurrence: None)
  Receive Date: 20120419
  Receipt Date: 20120416
  Transmission Date: 20120825
  Serious: Yes (Hospitalization, Other)
  Sender: FDA-Public Use
  Company Number: US-SANOFI-AVENTIS-2012SA007477

PATIENT
  Age: 73 Year
  Sex: Female

DRUGS (26)
  1. CISPLATIN [Suspect]
     Route: 065
     Dates: start: 20120202
  2. SODIUM CHLORIDE [Concomitant]
     Dosage: STK-MED/O
     Route: 042
     Dates: start: 20120127, end: 20120127
  3. SODIUM CHLORIDE [Concomitant]
     Dosage: STK-MED/O
     Route: 042
     Dates: start: 20120127, end: 20120127
  4. ONDANSETRON [Concomitant]
     Dosage: STK-MED/O
     Route: 042
     Dates: start: 20120127, end: 20120127
  5. DIPHENHYDRAMINE HCL [Concomitant]
     Dosage: FREQUENCY: 1.DO/NR
     Route: 042
     Dates: start: 20120127, end: 20120128
  6. LORAZEPAM [Concomitant]
     Dosage: FREQUENCY: Q6H/PRN
     Route: 042
     Dates: start: 20120127
  7. PANTOPRAZOLE [Concomitant]
     Route: 042
     Dates: start: 20120128
  8. DOCETAXEL [Suspect]
     Indication: NON-SMALL CELL LUNG CANCER STAGE IV
     Route: 065
     Dates: start: 20120118, end: 20120128
  9. FENTANYL CITRATE [Concomitant]
     Dosage: FREQUENCY: Q4H/PRN
     Route: 042
     Dates: start: 20120127
  10. ACETAMINOPHEN AND HYDROCODONE BITARTRATE [Concomitant]
  11. CISPLATIN [Suspect]
     Indication: NON-SMALL CELL LUNG CANCER STAGE IV
     Route: 065
     Dates: start: 20120118, end: 20120128
  12. ZOFRAN [Concomitant]
  13. ERLOTINIB HYDROCHLORIDE [Suspect]
     Dosage: DOSE REDUCED
     Route: 048
     Dates: start: 20120202
  14. LISINOPRIL AND HYDROCHLOROTHIAZIDE [Suspect]
     Route: 065
  15. TEMAZEPAM [Concomitant]
     Dosage: HS/PRN
     Route: 048
     Dates: start: 20120127
  16. DOCETAXEL [Suspect]
     Route: 065
     Dates: start: 20120202
  17. PROMETHAZINE [Concomitant]
     Dosage: Q4H/PRN
     Route: 042
     Dates: start: 20120127
  18. MORPHINE SULFATE [Concomitant]
     Dosage: STK-MED/O
     Route: 042
     Dates: start: 20120127, end: 20120127
  19. ERLOTINIB HYDROCHLORIDE [Suspect]
     Indication: NON-SMALL CELL LUNG CANCER STAGE IV
     Route: 048
     Dates: start: 20120118, end: 20120128
  20. LISINOPRIL AND HYDROCHLOROTHIAZIDE [Suspect]
     Indication: HYPERTENSION
     Route: 065
  21. PANTOPRAZOLE SODIUM [Concomitant]
     Dosage: FREQUENCY: ACD
     Route: 048
     Dates: start: 20120130
  22. LEVOTHYROXINE SODIUM [Concomitant]
  23. PIPERACILLIN [Concomitant]
     Dosage: STK-MED/O
     Route: 042
     Dates: start: 20120127, end: 20120127
  24. DEXTROSE [Concomitant]
     Route: 042
     Dates: start: 20120127, end: 20120128
  25. SODIUM CHLORIDE [Concomitant]
     Dosage: STK-MED/O
     Route: 042
     Dates: start: 20120127, end: 20120127
  26. ALPRAZOLAM [Concomitant]

REACTIONS (14)
  - RENAL FAILURE ACUTE [None]
  - PNEUMONIA [None]
  - MUSCLE SPASMS [None]
  - VOMITING [None]
  - INSOMNIA [None]
  - HEPATIC LESION [None]
  - WEIGHT DECREASED [None]
  - MALAISE [None]
  - DECREASED APPETITE [None]
  - NEOPLASM MALIGNANT [None]
  - DEHYDRATION [None]
  - GASTROENTERITIS [None]
  - PSEUDOMONAS TEST POSITIVE [None]
  - MALNUTRITION [None]
